FAERS Safety Report 8132169-X (Version None)
Quarter: 2012Q1

REPORT INFORMATION
  Report Type: 
  Country: None (occurrence: None)
  Receive Date: 20120208
  Receipt Date: 20120123
  Transmission Date: 20120608
  Serious: Yes (Hospitalization)
  Sender: FDA-Public Use
  Company Number: USA/USA/11/0021453

PATIENT
  Age: 60 Year
  Sex: Female
  Weight: 58.5 kg

DRUGS (20)
  1. VYTORIN [Concomitant]
  2. MILK OF MAGNESIA TAB [Concomitant]
  3. LEVOXYL [Concomitant]
  4. BLINDED THERAPY (BLINDED) [Suspect]
     Indication: OSTEOARTHRITIS
     Dosage: ORAL
     Route: 048
     Dates: start: 20091105, end: 20110915
  5. ESTRADIOL [Concomitant]
  6. COLACE (DOCUSATE SODIUM) [Concomitant]
  7. ETODOLAC [Concomitant]
  8. LUTEIN (XANTOFYL) [Concomitant]
  9. IBUPROFEN [Concomitant]
  10. CALCIUM W/MAGNESIUM (CALCIUM W/MAGNESIUM) [Concomitant]
  11. UNASYN [Suspect]
     Indication: URINARY TRACT INFECTION
     Dosage: RECONSTITUTED WITH NACL 9%, 100ML
     Dates: start: 20110803, end: 20110804
  12. AUGMENTIN '875' [Suspect]
     Indication: URINARY TRACT INFECTION
     Dosage: 2 IN 1 D, ORAL
     Route: 048
     Dates: start: 20110804, end: 20110807
  13. LISINOPRIL [Concomitant]
  14. OMEGA 3 PLUS D3 FISH OIL (FISH OIL) [Concomitant]
  15. COLECALCIFEROL (COLECALCIFEROL) [Concomitant]
  16. HEXAVITAMIN (HEXAVITAMIN /01719701/) [Concomitant]
  17. ASPIRIN [Concomitant]
  18. LIDODERM [Concomitant]
  19. NORCO (HYDROCODONE BITARTRATE + PARACETAMOL) (PROCET /01554201/) [Concomitant]
  20. MACROBID [Concomitant]

REACTIONS (13)
  - SCIATICA [None]
  - CULTURE URINE POSITIVE [None]
  - BLADDER DISORDER [None]
  - URINARY TRACT INFECTION [None]
  - INTERVERTEBRAL DISC PROTRUSION [None]
  - CLOSTRIDIUM DIFFICILE COLITIS [None]
  - GASTRITIS [None]
  - VERTEBRAL FORAMINAL STENOSIS [None]
  - PAIN [None]
  - KLEBSIELLA INFECTION [None]
  - URINARY RETENTION [None]
  - MUSCLE SPASMS [None]
  - FAECAL INCONTINENCE [None]
